FAERS Safety Report 21917391 (Version 5)
Quarter: 2024Q3

REPORT INFORMATION
  Report Type: Spontaneous
  Country: BR (occurrence: BR)
  Receive Date: 20230126
  Receipt Date: 20240816
  Transmission Date: 20241017
  Serious: Yes (Death, Life-Threatening, Hospitalization, Other)
  Sender: CELLTRION
  Company Number: BR-CELLTRION INC.-2023BR001591

PATIENT

DRUGS (9)
  1. INFLIXIMAB [Suspect]
     Active Substance: INFLIXIMAB
     Indication: Crohn^s disease
     Dosage: 3 AMPOULES - 100 MG - EVERY 4 WEEKS
     Route: 042
     Dates: start: 20221017, end: 20230909
  2. INFLIXIMAB [Suspect]
     Active Substance: INFLIXIMAB
     Dosage: 3 AMPOULES - 100 MG - EVERY 4 WEEKS
     Route: 042
     Dates: start: 20230111
  3. INFLIXIMAB [Suspect]
     Active Substance: INFLIXIMAB
     Dosage: 4 AMPOULES EVERY 4 WEEKS
     Route: 042
     Dates: end: 20230731
  4. PREDNISOLONE [Concomitant]
     Active Substance: PREDNISOLONE
     Indication: Pain
     Dosage: 1 PILL A DAY, START: FOR MORE THAN 2 MONTHS
     Route: 048
     Dates: end: 202303
  5. FERROUS SULFATE [Concomitant]
     Active Substance: FERROUS SULFATE
     Indication: Anaemia
     Dosage: 1 PILL A DAY
     Route: 048
     Dates: start: 2020
  6. VITAMIN B COMPLEX [Concomitant]
     Active Substance: CYANOCOBALAMIN\DEXPANTHENOL\NIACINAMIDE\PYRIDOXINE HYDROCHLORIDE\RIBOFLAVIN 5^-PHOSPHATE SODIUM\THIA
     Dosage: 1 PILL A DAY
     Route: 048
     Dates: start: 2020
  7. FOLIC ACID [Concomitant]
     Active Substance: FOLIC ACID
     Indication: Anaemia
     Dosage: 1 PILL A DAY
     Route: 048
     Dates: start: 2020
  8. AZATHIOPRINE [Concomitant]
     Active Substance: AZATHIOPRINE
     Indication: Crohn^s disease
     Dosage: 3 PILLS A DAY
     Route: 048
     Dates: start: 202212
  9. AZATHIOPRINE [Concomitant]
     Active Substance: AZATHIOPRINE
     Dosage: 1 PILL A DAY
     Route: 065

REACTIONS (28)
  - Sepsis [Fatal]
  - Crohn^s disease [Unknown]
  - Condition aggravated [Unknown]
  - Urinary tract infection [Unknown]
  - Pneumonia [Unknown]
  - Liver disorder [Unknown]
  - Anaemia [Unknown]
  - Confusional state [Unknown]
  - Hypotension [Unknown]
  - Abdominal distension [Unknown]
  - Anal fistula repair [Unknown]
  - Anal fissure excision [Unknown]
  - Dehydration [Unknown]
  - Gait inability [Unknown]
  - Enteritis infectious [Unknown]
  - Memory impairment [Unknown]
  - Swelling face [Unknown]
  - Weight decreased [Unknown]
  - Asthenia [Unknown]
  - Pain [Unknown]
  - Urinary tract infection [Unknown]
  - Diarrhoea [Unknown]
  - Gastrointestinal bacterial infection [Unknown]
  - Abdominal pain upper [Unknown]
  - Faeces soft [Unknown]
  - Phimosis [Unknown]
  - Intentional product use issue [Unknown]
  - Intentional product use issue [Unknown]

NARRATIVE: CASE EVENT DATE: 20221224
